FAERS Safety Report 5386489-2 (Version None)
Quarter: 2007Q3

REPORT INFORMATION
  Report Type: 
  Country: None (occurrence: None)
  Receive Date: 20070713
  Receipt Date: 20070705
  Transmission Date: 20080115
  Serious: Yes (Hospitalization)
  Sender: FDA-Public Use
  Company Number: US-JNJFOC-20070701540

PATIENT
  Sex: Male
  Weight: 88.91 kg

DRUGS (2)
  1. RISPERDAL CONSTA [Suspect]
     Indication: SCHIZOPHRENIA
     Route: 030
  2. ATIVAN [Concomitant]
     Indication: ANXIETY

REACTIONS (5)
  - AGGRESSION [None]
  - ANGER [None]
  - BELLIGERENCE [None]
  - DISTURBANCE IN SOCIAL BEHAVIOUR [None]
  - SELF INJURIOUS BEHAVIOUR [None]
